FAERS Safety Report 8089113-3 (Version None)
Quarter: 2012Q1

REPORT INFORMATION
  Report Type: 
  Country: None (occurrence: None)
  Receive Date: 20120128
  Receipt Date: 20110627
  Transmission Date: 20120608
  Serious: No
  Sender: FDA-Public Use
  Company Number: US-ABBOTT-11P-163-0834571-00

PATIENT
  Age: 63 Year
  Sex: Male

DRUGS (6)
  1. BYETTA [Concomitant]
     Indication: DIABETES MELLITUS
  2. HUMIRA [Suspect]
     Indication: PSORIATIC ARTHROPATHY
     Dates: start: 20090101
  3. DIOVAN [Concomitant]
     Indication: BLOOD PRESSURE
  4. LYRICA [Concomitant]
     Indication: NEURALGIA
     Route: 048
  5. TRAMADOL HCL [Concomitant]
     Indication: PAIN
     Route: 048
  6. UNKNOWN MEDICATION [Concomitant]
     Indication: DIABETES MELLITUS

REACTIONS (1)
  - ARTHRALGIA [None]
